FAERS Safety Report 4333826-3 (Version None)
Quarter: 2004Q2

REPORT INFORMATION
  Report Type: 
  Country: None (occurrence: None)
  Receive Date: 20040406
  Receipt Date: 20040406
  Transmission Date: 20050107
  Serious: No
  Sender: FDA-Public Use
  Company Number: None

PATIENT
  Sex: Female
  Weight: 49.8957 kg

DRUGS (16)
  1. LOVENOX [Suspect]
     Indication: HIP FRACTURE
     Dosage: 50 MG Q 12 H SQ
     Route: 058
     Dates: start: 20040324, end: 20040326
  2. SENNA [Concomitant]
  3. METOPROLOL [Concomitant]
  4. ZOCOR [Concomitant]
  5. SYNTHROID [Concomitant]
  6. FERROUS SULFATE TAB [Concomitant]
  7. VICODIN [Concomitant]
  8. MORPHINE [Concomitant]
  9. DARVOCET [Concomitant]
  10. ZAFRAN [Concomitant]
  11. TYLENOL (CAPLET) [Concomitant]
  12. COLACE [Concomitant]
  13. MOM [Concomitant]
  14. NITRO SL [Concomitant]
  15. MAALOX [Concomitant]
  16. AMBIEN [Concomitant]

REACTIONS (1)
  - HAEMORRHAGE [None]
